FAERS Safety Report 9658715 (Version 1)
Quarter: 2013Q4

REPORT INFORMATION
  Report Type: Spontaneous
  Country: US (occurrence: US)
  Receive Date: 20131030
  Receipt Date: 20131030
  Transmission Date: 20140711
  Serious: Yes (Hospitalization, Other)
  Sender: FDA-Public Use
  Company Number: US-NAPPMUNDI-USA-2011-0077602

PATIENT
  Sex: Male

DRUGS (1)
  1. OXYCONTIN (NDA 22-272) [Suspect]
     Indication: FOETAL EXPOSURE DURING PREGNANCY

REACTIONS (8)
  - Drug withdrawal syndrome neonatal [Unknown]
  - Convulsion [Unknown]
  - Maternal drugs affecting foetus [Unknown]
  - Foetal exposure during pregnancy [Unknown]
  - Musculoskeletal stiffness [Unknown]
  - Tremor neonatal [Unknown]
  - Pain [Unknown]
  - Diarrhoea [Unknown]
